FAERS Safety Report 7456680-X (Version None)
Quarter: 2011Q2

REPORT INFORMATION
  Report Type: 
  Country: None (occurrence: None)
  Receive Date: 20110503
  Receipt Date: 20110426
  Transmission Date: 20111010
  Serious: Yes (Death, Life-Threatening, Hospitalization, Other)
  Sender: FDA-Public Use
  Company Number: US-MILLENNIUM PHARMACEUTICALS, INC.-2009-04723

PATIENT

DRUGS (8)
  1. VELCADE [Suspect]
     Indication: GLIOBLASTOMA
     Dosage: 1.3 MG/M2, UNK
     Dates: start: 20091106, end: 20091106
  2. COMPAZINE [Concomitant]
     Indication: PRODUCT USED FOR UNKNOWN INDICATION
  3. DEXAMETHASONE [Concomitant]
     Indication: PRODUCT USED FOR UNKNOWN INDICATION
     Dosage: 8 MG, UNK
  4. OXYCONTIN [Concomitant]
     Indication: PRODUCT USED FOR UNKNOWN INDICATION
     Dosage: 15 MG, UNK
  5. ROXANOL [Concomitant]
     Indication: PRODUCT USED FOR UNKNOWN INDICATION
  6. ZOFRAN [Concomitant]
     Indication: PRODUCT USED FOR UNKNOWN INDICATION
     Dosage: 9 MG, UNK
  7. TEMODAR [Suspect]
     Indication: GLIOBLASTOMA
  8. LOVENOX [Concomitant]
     Indication: DEEP VEIN THROMBOSIS
     Dosage: 60 MG, UNK
     Route: 058

REACTIONS (3)
  - GLIOBLASTOMA MULTIFORME [None]
  - CEREBRAL HAEMORRHAGE [None]
  - INTRAVENTRICULAR HAEMORRHAGE [None]
